FAERS Safety Report 23691322 (Version 1)
Quarter: 2024Q2

REPORT INFORMATION
  Report Type: Spontaneous
  Country: AU (occurrence: AU)
  Receive Date: 20240401
  Receipt Date: 20240401
  Transmission Date: 20240716
  Serious: Yes (Life-Threatening)
  Sender: FDA-Public Use
  Company Number: AU-BAYER-2024A043398

PATIENT
  Age: 57 Year

DRUGS (1)
  1. NEXAVAR [Suspect]
     Active Substance: SORAFENIB
     Indication: Desmoid tumour
     Dosage: UNK

REACTIONS (2)
  - Desmoid tumour [None]
  - Off label use [None]
